FAERS Safety Report 23956374 (Version 2)
Quarter: 2024Q2

REPORT INFORMATION
  Report Type: Report from Study
  Country: US (occurrence: US)
  Receive Date: 20240610
  Receipt Date: 20240617
  Transmission Date: 20240716
  Serious: No
  Sender: FDA-Public Use
  Company Number: US-SANDOZ-SDZ2024US055882

PATIENT
  Age: 5 Year

DRUGS (4)
  1. OMNITROPE [Suspect]
     Active Substance: SOMATROPIN
     Dosage: 0.7 MG QD
     Route: 065
     Dates: start: 20240419
  2. OMNITROPE [Suspect]
     Active Substance: SOMATROPIN
     Dosage: 0.7 MG QD
     Route: 065
     Dates: start: 20240419
  3. OMNITROPE [Suspect]
     Active Substance: SOMATROPIN
     Indication: Product used for unknown indication
     Dosage: 5 MG QD
     Route: 058
     Dates: start: 20240419
  4. OMNITROPE [Suspect]
     Active Substance: SOMATROPIN
     Indication: Product used for unknown indication
     Dosage: 5 MG QD
     Route: 058
     Dates: start: 20240419

REACTIONS (4)
  - Circumstance or information capable of leading to device use error [Unknown]
  - Device leakage [Not Recovered/Not Resolved]
  - Poor quality device used [Unknown]
  - Drug administered in wrong device [Unknown]

NARRATIVE: CASE EVENT DATE: 20240419
